FAERS Safety Report 5123076-5 (Version None)
Quarter: 2006Q4

REPORT INFORMATION
  Report Type: 
  Country: None (occurrence: None)
  Receive Date: 20061005
  Receipt Date: 20060921
  Transmission Date: 20070319
  Serious: Yes (Other)
  Sender: FDA-Public Use
  Company Number: 2006114796

PATIENT
  Sex: Female

DRUGS (1)
  1. BENGAY (MENTHOL) [Suspect]
     Dosage: UNSPECIFIED, INHALATION
     Route: 055

REACTIONS (2)
  - DIZZINESS [None]
  - RESPIRATORY FUME INHALATION DISORDER [None]
